FAERS Safety Report 8352009-3 (Version None)
Quarter: 2012Q2

REPORT INFORMATION
  Report Type: 
  Country: None (occurrence: None)
  Receive Date: 20120509
  Receipt Date: 20120426
  Transmission Date: 20120825
  Serious: Yes (Hospitalization)
  Sender: FDA-Public Use
  Company Number: IMP_05868_2012

PATIENT
  Age: 77 Year
  Sex: Male

DRUGS (1)
  1. LEVODOPA (LEVODOPA) [Suspect]
     Indication: PARKINSON'S DISEASE
     Dosage: (100 MG TID), (DF)

REACTIONS (13)
  - BRADYKINESIA [None]
  - COGNITIVE DISORDER [None]
  - ABNORMAL BEHAVIOUR [None]
  - IRRITABILITY [None]
  - HALLUCINATION, VISUAL [None]
  - RESPIRATORY DISORDER [None]
  - CONFUSIONAL STATE [None]
  - RENAL FAILURE [None]
  - MUSCLE RIGIDITY [None]
  - LEUKOENCEPHALOPATHY [None]
  - DYSPHONIA [None]
  - CEREBRAL ATROPHY [None]
  - AGITATION [None]
